FAERS Safety Report 4573492-5 (Version None)
Quarter: 2005Q1

REPORT INFORMATION
  Report Type: 
  Country: None (occurrence: None)
  Receive Date: 20050208
  Receipt Date: 20040827
  Transmission Date: 20050727
  Serious: No
  Sender: FDA-Public Use
  Company Number: US-GLAXOSMITHKLINE-A0523794A

PATIENT
  Age: 54 Year
  Sex: Male

DRUGS (9)
  1. PAXIL [Suspect]
     Indication: PANIC DISORDER
     Dosage: 1TAB THREE TIMES PER DAY
     Route: 048
  2. BISOPROLOL FUMARATE [Concomitant]
  3. LORTAB [Concomitant]
  4. VALIUM [Concomitant]
  5. XANAX [Concomitant]
  6. CRESTOR [Concomitant]
  7. TRICOR [Concomitant]
  8. POTASSIUM CHLORIDE [Concomitant]
  9. LASIX [Concomitant]

REACTIONS (3)
  - DECREASED APPETITE [None]
  - DEPRESSIVE SYMPTOM [None]
  - HYPERSOMNIA [None]
